FAERS Safety Report 13521212 (Version 1)
Quarter: 2017Q2

REPORT INFORMATION
  Report Type: Spontaneous
  Country: JP (occurrence: JP)
  Receive Date: 20170508
  Receipt Date: 20170508
  Transmission Date: 20170830
  Serious: Yes (Other)
  Sender: FDA-Public Use
  Company Number: JP-MUNDIPHARMA DS AND PHARMACOVIGILANCE-GBR-2017-0045093

PATIENT
  Age: 44 Year
  Sex: Male

DRUGS (7)
  1. TRAMADOL HYDROCHLORIDE AND ACETAMINOPHEN [Suspect]
     Active Substance: ACETAMINOPHEN\TRAMADOL HYDROCHLORIDE
     Indication: NEURALGIA
     Dosage: 5 DF, DAILY
     Route: 048
     Dates: start: 20150109
  2. BUPRENORPHINE. [Suspect]
     Active Substance: BUPRENORPHINE
     Indication: NEURALGIA
     Dosage: 10 MG, 1/DAY
     Route: 062
     Dates: start: 20151026
  3. DUROTEP [Suspect]
     Active Substance: FENTANYL
     Indication: PAIN
     Dosage: UNK
     Route: 062
  4. TRAMAL [Suspect]
     Active Substance: TRAMADOL
     Dosage: 100 MG, DAILY
     Route: 065
     Dates: start: 20140911
  5. LYRICA [Suspect]
     Active Substance: PREGABALIN
     Indication: NEURALGIA
     Dosage: 150 MG, DAILY
     Route: 048
     Dates: start: 20150411
  6. TRAMAL [Suspect]
     Active Substance: TRAMADOL
     Dosage: UNK
     Route: 065
     Dates: end: 20150411
  7. TRAMAL [Suspect]
     Active Substance: TRAMADOL
     Indication: PAIN
     Dosage: 225 MG, DAILY
     Route: 065

REACTIONS (4)
  - Contraindicated product administered [Unknown]
  - Drug withdrawal syndrome [Recovering/Resolving]
  - Ankylosing spondylitis [Unknown]
  - Hyperhidrosis [Recovering/Resolving]

NARRATIVE: CASE EVENT DATE: 20150109
